FAERS Safety Report 8918115 (Version 2)
Quarter: 2012Q4

REPORT INFORMATION
  Report Type: 
  Country: JP (occurrence: JP)
  Receive Date: 20121120
  Receipt Date: 20121226
  Transmission Date: 20130627
  Serious: Yes (Other)
  Sender: FDA-Public Use
  Company Number: PHHY2012JP105304

PATIENT
  Age: 57 Year
  Sex: Male

DRUGS (6)
  1. FLUOROURACIL [Suspect]
     Indication: RECTAL CANCER STAGE IV
     Dosage: UNK
     Dates: start: 200705, end: 200801
  2. FLUOROURACIL [Suspect]
     Dosage: UNK
     Dates: start: 201002
  3. FOLINIC ACID [Suspect]
     Indication: RECTAL CANCER STAGE IV
     Dosage: UNK
     Dates: start: 200705, end: 200801
  4. FOLINIC ACID [Suspect]
     Dosage: UNK
     Dates: start: 201002
  5. OXALIPLATIN [Suspect]
     Indication: RECTAL CANCER STAGE IV
     Dosage: UNK
     Dates: start: 200705, end: 200801
  6. OXALIPLATIN [Suspect]
     Dosage: UNK
     Dates: start: 201002

REACTIONS (3)
  - Neuropathy peripheral [Unknown]
  - Diarrhoea [Unknown]
  - Vomiting [Unknown]
